FAERS Safety Report 11247394 (Version 3)
Quarter: 2015Q3

REPORT INFORMATION
  Report Type: Report from Study
  Country: AU (occurrence: AU)
  Receive Date: 20150708
  Receipt Date: 20150818
  Transmission Date: 20151125
  Serious: Yes (Hospitalization)
  Sender: FDA-Public Use
  Company Number: AU-JNJFOC-20150704188

PATIENT
  Age: 89 Year
  Sex: Female
  Weight: 89 kg

DRUGS (15)
  1. POLYVINYL ALCOHOL [Concomitant]
     Active Substance: POLYVINYL ALCOHOL
     Dosage: 1 DROP IN EACH EYE
     Route: 065
  2. MOVICOL [Concomitant]
     Active Substance: POLYETHYLENE GLYCOL 3350\POTASSIUM CHLORIDE\SODIUM BICARBONATE\SODIUM CHLORIDE
     Route: 065
  3. SIMPONI [Suspect]
     Active Substance: GOLIMUMAB
     Indication: ANKYLOSING SPONDYLITIS
     Route: 058
     Dates: start: 20150514
  4. DOXYCYCLINE. [Concomitant]
     Active Substance: DOXYCYCLINE
     Dosage: FIRST DAY
     Route: 065
  5. SALBUTAMOL [Concomitant]
     Active Substance: ALBUTEROL
     Dosage: 2 PUFFS EVERY 4 HOURS ONLY WHEN NEEDED
     Route: 065
  6. NEXIUM [Concomitant]
     Active Substance: ESOMEPRAZOLE MAGNESIUM
     Dosage: BREAKFAST
     Route: 065
  7. DOXYCYCLINE. [Concomitant]
     Active Substance: DOXYCYCLINE
     Dosage: FIRST DAY
     Route: 065
  8. PANADOL [Concomitant]
     Active Substance: ACETAMINOPHEN
     Dosage: 2 BREAKFAST, DINNER, LUNCH
     Route: 065
  9. FLIXOTIDE [Concomitant]
     Active Substance: FLUTICASONE PROPIONATE
     Dosage: 2 PUFFS BREAKFAST AND DINNER VIA SPACER
     Route: 065
  10. PANADEINE FORTE [Concomitant]
     Active Substance: ACETAMINOPHEN\CODEINE PHOSPHATE
     Dosage: WITH 1 PANADOL OSTEO 3 TIMES A DAY, ONLY WHEN NEEDED
     Route: 065
  11. DITROPAN [Concomitant]
     Active Substance: OXYBUTYNIN CHLORIDE
     Dosage: BREAKFAST, DINNER
     Route: 065
  12. GASTRO STOP [Concomitant]
     Dosage: 1-2 CAPS TDS PRN
     Route: 065
  13. CLOPIDOGREL [Concomitant]
     Active Substance: CLOPIDOGREL BISULFATE
     Dosage: BREAKFAST
     Route: 065
  14. ELOCON [Concomitant]
     Active Substance: MOMETASONE FUROATE
     Indication: DERMATITIS
     Dosage: APPLY TO AFFECTED AREA
     Route: 065
  15. MEBEVERINE [Concomitant]
     Active Substance: MEBEVERINE
     Dosage: PRN
     Route: 065

REACTIONS (2)
  - Lower respiratory tract infection [Recovered/Resolved]
  - Pneumonia [Recovered/Resolved]

NARRATIVE: CASE EVENT DATE: 20150701
